FAERS Safety Report 14680388 (Version 1)
Quarter: 2018Q1

REPORT INFORMATION
  Report Type: Spontaneous
  Country: JP (occurrence: JP)
  Receive Date: 20180326
  Receipt Date: 20180326
  Transmission Date: 20180509
  Serious: Yes (Other)
  Sender: FDA-Public Use
  Company Number: PHHY2017JP160763

PATIENT
  Age: 72 Year
  Sex: Female
  Weight: 39 kg

DRUGS (9)
  1. IMUSERA [Suspect]
     Active Substance: FINGOLIMOD HYDROCHLORIDE
     Indication: MULTIPLE SCLEROSIS
     Dosage: 0.5 MG, QD
     Route: 048
     Dates: start: 20150402, end: 20171024
  2. SENNOSIDE [Concomitant]
     Active Substance: SENNOSIDES
     Indication: CONSTIPATION
     Dosage: 24 MG, QD
     Route: 048
  3. IMUSERA [Suspect]
     Active Substance: FINGOLIMOD HYDROCHLORIDE
     Dosage: 0.5 MG, QW2
     Route: 048
     Dates: start: 20171025, end: 20171116
  4. EQUA [Concomitant]
     Active Substance: VILDAGLIPTIN
     Indication: TYPE 2 DIABETES MELLITUS
     Dosage: 100 MG, QD
     Route: 048
  5. PRAVASTATIN SODIUM. [Concomitant]
     Active Substance: PRAVASTATIN SODIUM
     Indication: HYPERCHOLESTEROLAEMIA
     Dosage: 10 MG, QD
     Route: 048
  6. MERCAZOLE [Concomitant]
     Active Substance: CARBIMAZOLE
     Indication: HYPERTHYROIDISM
     Dosage: 10 MG, QD
     Route: 048
  7. BETAFERON [Concomitant]
     Active Substance: INTERFERON BETA-1B
     Indication: PRODUCT USED FOR UNKNOWN INDICATION
     Route: 051
     Dates: start: 2001
  8. BREDININ [Concomitant]
     Active Substance: MIZORIBINE
     Indication: PRODUCT USED FOR UNKNOWN INDICATION
     Dosage: 150 MG, TID
     Route: 048
  9. RIVASTACH [Concomitant]
     Active Substance: RIVASTIGMINE
     Indication: PRODUCT USED FOR UNKNOWN INDICATION
     Route: 065
     Dates: start: 201312

REACTIONS (1)
  - White matter lesion [Unknown]

NARRATIVE: CASE EVENT DATE: 20171024
